FAERS Safety Report 11409963 (Version 1)
Quarter: 2015Q3

REPORT INFORMATION
  Report Type: Spontaneous
  Country: GB (occurrence: GB)
  Receive Date: 20150824
  Receipt Date: 20150824
  Transmission Date: 20151125
  Serious: Yes (Other)
  Sender: FDA-Public Use
  Company Number: GB-TEVA-586927ACC

PATIENT
  Age: 70 Year
  Sex: Male
  Weight: 82 kg

DRUGS (5)
  1. TAMSULOSIN [Suspect]
     Active Substance: TAMSULOSIN
     Indication: PRODUCT USED FOR UNKNOWN INDICATION
     Route: 065
     Dates: start: 20150615
  2. FLIXONASE [Concomitant]
     Active Substance: FLUTICASONE PROPIONATE
     Dosage: 4 DOSAGE FORMS DAILY; SWALLOW TWO SPRAYS TWICE DAILY VIA MOUTH FOR EO...
     Dates: start: 20150118
  3. TRIMETHOPRIM. [Concomitant]
     Active Substance: TRIMETHOPRIM
     Indication: ILL-DEFINED DISORDER
     Dosage: 2 DOSAGE FORMS DAILY;
     Dates: start: 20150717, end: 20150720
  4. DIAZEPAM. [Concomitant]
     Active Substance: DIAZEPAM
     Dosage: TAKE ONE AS REQUIRED
     Dates: start: 20150615, end: 20150622
  5. OMEPRAZOLE. [Concomitant]
     Active Substance: OMEPRAZOLE
     Dosage: 2 DOSAGE FORMS DAILY;
     Dates: start: 20141107

REACTIONS (2)
  - Dry mouth [Recovered/Resolved]
  - Gastrointestinal disorder [Unknown]

NARRATIVE: CASE EVENT DATE: 20150724
